FAERS Safety Report 5576858-X (Version None)
Quarter: 2007Q4

REPORT INFORMATION
  Report Type: 
  Country: None (occurrence: None)
  Receive Date: 20071228
  Receipt Date: 20071206
  Transmission Date: 20080405
  Serious: Yes (Other)
  Sender: FDA-Public Use
  Company Number: US-RANBAXY-2007US-12295

PATIENT

DRUGS (2)
  1. ISOTRETINOIN [Suspect]
     Indication: ACNE
     Dosage: UNK
     Route: 048
  2. ISOTRETINOIN [Suspect]
     Route: 048

REACTIONS (4)
  - BLISTER [None]
  - ERYTHEMA MULTIFORME [None]
  - RASH [None]
  - SKIN EXFOLIATION [None]
